FAERS Safety Report 17541825 (Version 1)
Quarter: 2020Q1

REPORT INFORMATION
  Report Type: Spontaneous
  Country: US (occurrence: US)
  Receive Date: 20200313
  Receipt Date: 20200313
  Transmission Date: 20200409
  Serious: Yes (Other)
  Sender: FDA-Public Use
  Company Number: US-BAUSCH-BL-2020-007252

PATIENT
  Age: 17 Year
  Sex: Male

DRUGS (4)
  1. TRETINOIN. [Concomitant]
     Active Substance: TRETINOIN
     Indication: ACNE
     Dosage: DAILY
  2. BENZACLIN [Concomitant]
     Active Substance: BENZOYL PEROXIDE\CLINDAMYCIN PHOSPHATE
     Indication: ACNE
     Dosage: DAILY
  3. SULFACETAMIDE SODIUM-SULFUR [Concomitant]
     Indication: ACNE
     Dosage: 10-5 PERCENT DAILY
  4. MINOCYCLINE [Suspect]
     Active Substance: MINOCYCLINE HYDROCHLORIDE
     Indication: ACNE
     Route: 065

REACTIONS (3)
  - IIIrd nerve paralysis [Recovered/Resolved]
  - Brain stem ischaemia [Recovered/Resolved]
  - Vasculitis [Recovered/Resolved]
